FAERS Safety Report 6603140-1 (Version None)
Quarter: 2010Q1

REPORT INFORMATION
  Report Type: 
  Country: None (occurrence: None)
  Receive Date: 20100226
  Receipt Date: 20100217
  Transmission Date: 20100710
  Serious: Yes (Hospitalization)
  Sender: FDA-Public Use
  Company Number: FR-PFIZER INC-2010020523

PATIENT
  Age: 59 Year
  Sex: Female

DRUGS (7)
  1. TAHOR [Suspect]
     Dosage: 20 MG, 1X/DAY
     Route: 048
  2. VINORELBINE [Suspect]
     Dosage: 1 INJECTION MONTHLY
     Route: 042
     Dates: start: 20091124, end: 20091124
  3. VINORELBINE [Suspect]
     Dosage: 1 INJECTION MONTHLY
     Route: 042
     Dates: start: 20091221, end: 20091221
  4. CORDARONE [Suspect]
     Dosage: 1 DF, 1X/DAY
     Route: 048
  5. FLECAINIDE ACETATE [Suspect]
     Dosage: 200 MG, 1X/DAY
     Route: 048
  6. LEVOTHYROX [Suspect]
     Dosage: 25 UG, 1X/DAY
     Route: 048
  7. LASILIX [Suspect]
     Dosage: 40 MG, 1X/DAY
     Route: 048

REACTIONS (3)
  - AREFLEXIA [None]
  - FINE MOTOR DELAY [None]
  - MUSCULAR WEAKNESS [None]
